FAERS Safety Report 25074352 (Version 1)
Quarter: 2025Q1

REPORT INFORMATION
  Report Type: Spontaneous
  Country: US (occurrence: US)
  Receive Date: 20250313
  Receipt Date: 20250313
  Transmission Date: 20250408
  Serious: Yes (Other)
  Sender: PFIZER
  Company Number: US-PFIZER INC-202500053327

PATIENT
  Age: 72 Year
  Sex: Female
  Weight: 61.678 kg

DRUGS (1)
  1. LORBRENA [Suspect]
     Active Substance: LORLATINIB
     Indication: Non-small cell lung cancer stage IV
     Dosage: 100 MG, 1X/DAY
     Route: 048
     Dates: start: 202501, end: 202502

REACTIONS (14)
  - Tourette^s disorder [Recovering/Resolving]
  - Hallucination [Recovering/Resolving]
  - Anxiety [Not Recovered/Not Resolved]
  - Night sweats [Recovering/Resolving]
  - Diarrhoea [Recovering/Resolving]
  - Peripheral swelling [Recovering/Resolving]
  - Weight increased [Recovering/Resolving]
  - Depressed mood [Recovering/Resolving]
  - Tremor [Recovering/Resolving]
  - Confusional state [Not Recovered/Not Resolved]
  - Memory impairment [Not Recovered/Not Resolved]
  - Speech disorder [Recovering/Resolving]
  - Eye disorder [Recovering/Resolving]
  - Wrong technique in product usage process [Unknown]

NARRATIVE: CASE EVENT DATE: 20250101
